FAERS Safety Report 12087991 (Version 2)
Quarter: 2016Q2

REPORT INFORMATION
  Report Type: Spontaneous
  Country: US (occurrence: US)
  Receive Date: 20160217
  Receipt Date: 20160523
  Transmission Date: 20160815
  Serious: No
  Sender: FDA-Public Use
  Company Number: US-ALLERGAN-1525912US

PATIENT
  Age: 44 Year
  Sex: Female
  Weight: 81.63 kg

DRUGS (2)
  1. KYBELLA [Suspect]
     Active Substance: DEOXYCHOLIC ACID
     Indication: PRODUCT USED FOR UNKNOWN INDICATION
     Dosage: 4 ML, SINGLE
     Route: 058
     Dates: start: 20151105, end: 20151105
  2. KYBELLA [Suspect]
     Active Substance: DEOXYCHOLIC ACID
     Dosage: UNK
     Route: 058

REACTIONS (1)
  - Nodule [Recovered/Resolved]

NARRATIVE: CASE EVENT DATE: 20151120
